FAERS Safety Report 7835781-8 (Version None)
Quarter: 2011Q4

REPORT INFORMATION
  Report Type: 
  Country: None (occurrence: None)
  Receive Date: 20111024
  Receipt Date: 20111012
  Transmission Date: 20120403
  Serious: Yes (Other)
  Sender: FDA-Public Use
  Company Number: US-BAYER-2011-098564

PATIENT
  Age: 60 Year
  Sex: Female
  Weight: 83.9 kg

DRUGS (1)
  1. BETASERON [Suspect]
     Indication: MULTIPLE SCLEROSIS
     Dosage: 0.3 MG, QOD
     Route: 058
     Dates: start: 19941012

REACTIONS (2)
  - SKIN ATROPHY [None]
  - INCISION SITE HAEMORRHAGE [None]
